FAERS Safety Report 9370339 (Version 2)
Quarter: 2013Q3

REPORT INFORMATION
  Report Type: Spontaneous
  Country: US (occurrence: US)
  Receive Date: 20130626
  Receipt Date: 20130808
  Transmission Date: 20140515
  Serious: No
  Sender: FDA-Public Use
  Company Number: US-PFIZER INC-2013189386

PATIENT
  Sex: Female

DRUGS (5)
  1. LYRICA [Suspect]
     Dosage: 75 MG, 2X/DAY
     Route: 048
  2. ALPRAZOLAM [Suspect]
     Dosage: UNK
  3. FOLIC ACID [Suspect]
     Dosage: UNK
  4. SIMVASTATIN [Suspect]
     Dosage: UNK
  5. BENADRYL [Suspect]
     Dosage: UNK

REACTIONS (1)
  - Dizziness [Unknown]
